FAERS Safety Report 7294869-3 (Version None)
Quarter: 2011Q1

REPORT INFORMATION
  Report Type: 
  Country: None (occurrence: None)
  Receive Date: 20110216
  Receipt Date: 20110202
  Transmission Date: 20110831
  Serious: Yes (Hospitalization)
  Sender: FDA-Public Use
  Company Number: US-BAYER-2011-002567

PATIENT
  Sex: Female

DRUGS (10)
  1. INTERFERON BETA-1B [Suspect]
     Indication: RELAPSING-REMITTING MULTIPLE SCLEROSIS
     Dosage: UNK
     Route: 058
     Dates: start: 20020724, end: 20041021
  2. INTERFERON BETA-1B [Suspect]
     Dosage: UNK
     Route: 058
     Dates: start: 20060426, end: 20080714
  3. TYSABRI [Concomitant]
     Dosage: UNK
     Dates: start: 20080901, end: 20100801
  4. INTERFERON BETA-1B [Suspect]
     Dosage: 4.8 MIU, QOD
     Route: 058
     Dates: start: 20101130
  5. ACETAMINOPHEN [Concomitant]
     Indication: PREMEDICATION
  6. COPAXONE [Concomitant]
     Dosage: UNK
     Dates: start: 20060401, end: 20060405
  7. INTERFERON BETA-1B [Suspect]
     Dosage: 4 MIU, QOD
     Route: 058
  8. LISINOPRIL [Concomitant]
     Dosage: 10 MG, QD
  9. BACTRIM [Concomitant]
  10. INTERFERON BETA-1B [Suspect]
     Dosage: 8 MIU, QOD
     Route: 058

REACTIONS (6)
  - EPISTAXIS [None]
  - INJECTION SITE PAIN [None]
  - INJECTION SITE ERYTHEMA [None]
  - CYSTITIS [None]
  - BLOOD PRESSURE INCREASED [None]
  - FATIGUE [None]
